FAERS Safety Report 7562165-2 (Version None)
Quarter: 2011Q2

REPORT INFORMATION
  Report Type: 
  Country: None (occurrence: None)
  Receive Date: 20110620
  Receipt Date: 20110620
  Transmission Date: 20111010
  Serious: No
  Sender: FDA-Public Use
  Company Number: None

PATIENT
  Age: 78 Year
  Sex: Male

DRUGS (2)
  1. DRONEDARONE HCL [Suspect]
     Indication: HYPERTENSION
     Dosage: 400 MG BID PO
     Route: 048
     Dates: start: 20110601, end: 20110617
  2. DRONEDARONE HCL [Suspect]
     Indication: ATRIAL FIBRILLATION
     Dosage: 400 MG BID PO
     Route: 048
     Dates: start: 20110601, end: 20110617

REACTIONS (1)
  - DIZZINESS [None]
